FAERS Safety Report 24654018 (Version 2)
Quarter: 2025Q1

REPORT INFORMATION
  Report Type: Spontaneous
  Country: CA (occurrence: CA)
  Receive Date: 20241122
  Receipt Date: 20250130
  Transmission Date: 20250409
  Serious: Yes (Other)
  Sender: PFIZER
  Company Number: CA-PFIZER INC-202400308476

PATIENT
  Age: 77 Year
  Sex: Male

DRUGS (3)
  1. METHOTREXATE SODIUM [Suspect]
     Active Substance: METHOTREXATE SODIUM
  2. ERELZI [Suspect]
     Active Substance: ETANERCEPT-SZZS
     Indication: Rheumatoid arthritis
     Dosage: 50 MG, WEEKLY
     Route: 058
  3. FOLIC ACID [Suspect]
     Active Substance: FOLIC ACID
     Route: 065

REACTIONS (2)
  - Throat cancer [Unknown]
  - Intentional dose omission [Unknown]
